FAERS Safety Report 10190153 (Version 2)
Quarter: 2014Q2

REPORT INFORMATION
  Report Type: Spontaneous
  Country: US (occurrence: US)
  Receive Date: 20140522
  Receipt Date: 20140529
  Transmission Date: 20141212
  Serious: No
  Sender: FDA-Public Use
  Company Number: US-PFIZER INC-2014134905

PATIENT
  Sex: Female

DRUGS (2)
  1. BOSULIF [Suspect]
     Dosage: UNK
  2. CARVEDILOL [Interacting]
     Dosage: UNK
     Dates: start: 201110

REACTIONS (2)
  - Heart rate increased [Unknown]
  - Drug interaction [Unknown]
